FAERS Safety Report 6504697-1 (Version None)
Quarter: 2009Q4

REPORT INFORMATION
  Report Type: 
  Country: None (occurrence: None)
  Receive Date: 20091215
  Receipt Date: 20091130
  Transmission Date: 20100525
  Serious: Yes (Hospitalization)
  Sender: FDA-Public Use
  Company Number: 1-20973124

PATIENT
  Age: 15 Year
  Sex: Male

DRUGS (7)
  1. FENTANYL [Suspect]
     Indication: PREMEDICATION
     Dosage: 0.1 MG (CUMULATIVE), INTRAVENOUS
     Route: 042
     Dates: start: 20091111, end: 20091111
  2. PROPOFOL [Suspect]
     Indication: INDUCTION OF ANAESTHESIA
     Dosage: 100 MG (CUMULATIVE), INTRAVENOUS
     Route: 042
     Dates: start: 20091111, end: 20091111
  3. VANCOMYCIN [Suspect]
     Indication: ENDOCARDITIS PROPHYLAXIS
     Dosage: 750 MG (CUMULATIVE), INTRAVENOUS
     Route: 042
     Dates: start: 20091111, end: 20091111
  4. REMIFENTANIL [Suspect]
     Indication: INDUCTION OF ANAESTHESIA
     Dosage: 0.055 MG (CUMULATIVE), INTRAVENOUS
     Route: 042
     Dates: start: 20091111, end: 20091111
  5. ATROPINE [Concomitant]
  6. MIDAZOLAM HCL [Concomitant]
  7. VIVAL [Concomitant]

REACTIONS (3)
  - FLUSHING [None]
  - HYPOTENSION [None]
  - URTICARIA [None]
